FAERS Safety Report 5931686-8 (Version None)
Quarter: 2008Q4

REPORT INFORMATION
  Report Type: 
  Country: None (occurrence: None)
  Receive Date: 20081027
  Receipt Date: 20081015
  Transmission Date: 20090506
  Serious: Yes (Death)
  Sender: FDA-Public Use
  Company Number: ES-WYE-G02393608

PATIENT
  Age: 70 Year
  Sex: Female

DRUGS (1)
  1. DOBUPAL RETARD [Suspect]
     Indication: DEPRESSION
     Dosage: ^150 DAILY^
     Route: 048
     Dates: start: 20080720, end: 20080822

REACTIONS (4)
  - DYSPNOEA [None]
  - PALPITATIONS [None]
  - SINUS TACHYCARDIA [None]
  - SUDDEN DEATH [None]
